FAERS Safety Report 6382594-2 (Version None)
Quarter: 2009Q3

REPORT INFORMATION
  Report Type: 
  Country: None (occurrence: None)
  Receive Date: 20090930
  Receipt Date: 20090928
  Transmission Date: 20100115
  Serious: Yes (Other)
  Sender: FDA-Public Use
  Company Number: B0595369A

PATIENT
  Age: 30 Year
  Sex: Male

DRUGS (2)
  1. WELLBUTRIN [Suspect]
     Route: 065
     Dates: start: 20090828
  2. LITHIUM [Suspect]
     Indication: DRUG USE FOR UNKNOWN INDICATION
     Route: 065

REACTIONS (2)
  - CONVULSION [None]
  - MUSCLE TWITCHING [None]
